FAERS Safety Report 13898000 (Version 4)
Quarter: 2017Q4

REPORT INFORMATION
  Report Type: Spontaneous
  Country: JP (occurrence: JP)
  Receive Date: 20170823
  Receipt Date: 20171102
  Transmission Date: 20180320
  Serious: Yes (Life-Threatening, Hospitalization, Other)
  Sender: FDA-Public Use
  Company Number: JP-PFIZER INC-2017363160

PATIENT
  Age: 85 Year
  Sex: Female
  Weight: 48 kg

DRUGS (7)
  1. SOLDEM 3A [Concomitant]
     Active Substance: CARBOHYDRATES\POTASSIUM CHLORIDE\SODIUM CHLORIDE\SODIUM LACTATE
     Dosage: UNK
     Route: 041
  2. VITAMEDIN [Concomitant]
     Active Substance: CYANOCOBALAMIN\PYRIDOXINE HYDROCHLORIDE\THIAMINE
     Dosage: UNK
  3. ZOSYN [Suspect]
     Active Substance: PIPERACILLIN SODIUM\TAZOBACTAM SODIUM
     Indication: PNEUMONIA ASPIRATION
     Dosage: 2.25 G, 3X/DAY
     Route: 041
     Dates: start: 20170810, end: 20170814
  4. DOPASTON [Suspect]
     Active Substance: LEVODOPA
     Indication: PARKINSONISM
     Dosage: 75 MG, DAILY
     Route: 041
     Dates: start: 20170810
  5. VITACIMIN [Concomitant]
     Dosage: UNK
  6. NOREPINEPHRINE. [Concomitant]
     Active Substance: NOREPINEPHRINE
     Dosage: UNK
  7. HEPARIN [Concomitant]
     Active Substance: HEPARIN SODIUM
     Dosage: UNK

REACTIONS (1)
  - Interstitial lung disease [Recovering/Resolving]

NARRATIVE: CASE EVENT DATE: 20170814
